FAERS Safety Report 7538492-1 (Version None)
Quarter: 2011Q2

REPORT INFORMATION
  Report Type: 
  Country: None (occurrence: None)
  Receive Date: 20110609
  Receipt Date: 20110527
  Transmission Date: 20111010
  Serious: Yes (Hospitalization)
  Sender: FDA-Public Use
  Company Number: GB-MYLANLABS-2011S1011270

PATIENT
  Age: 11 Year
  Sex: Male

DRUGS (2)
  1. TACROLIMUS [Suspect]
     Indication: IMMUNOSUPPRESSION
     Dosage: DOSED TO PREDOSE SERUM CONCENTRATION OF 2-3 MICROG/L
     Route: 065
  2. PREDNISOLONE [Suspect]
     Indication: IMMUNOSUPPRESSION
     Dosage: 1 MG/DAY
     Route: 065

REACTIONS (1)
  - GLOMERULONEPHRITIS ACUTE [None]
